FAERS Safety Report 24438672 (Version 1)
Quarter: 2024Q4

REPORT INFORMATION
  Report Type: Spontaneous
  Country: US (occurrence: US)
  Receive Date: 20241015
  Receipt Date: 20241015
  Transmission Date: 20250115
  Serious: No
  Sender: FRESENIUS KABI
  Company Number: US-FreseniusKabi-FK202415100

PATIENT

DRUGS (4)
  1. FLUOROURACIL [Suspect]
     Active Substance: FLUOROURACIL
     Indication: Product used for unknown indication
     Dosage: NALIRIFOX -ONVIDYE REGIMEN
  2. LEUCOVORIN [Suspect]
     Active Substance: LEUCOVORIN\LEUCOVORIN CALCIUM
     Indication: Product used for unknown indication
     Dosage: NALIRIFOX -ONVIDYE REGIMEN
  3. OXALIPLATIN [Suspect]
     Active Substance: OXALIPLATIN
     Indication: Product used for unknown indication
     Dosage: NALIRIFOX -ONVIDYE REGIMEN
  4. IRINOTECAN [Suspect]
     Active Substance: IRINOTECAN
     Indication: Product used for unknown indication
     Dosage: NALIRIFOX -ONVIDYE REGIMEN

REACTIONS (1)
  - Infusion site reaction [Unknown]
